FAERS Safety Report 6181161-3 (Version None)
Quarter: 2009Q2

REPORT INFORMATION
  Report Type: 
  Country: None (occurrence: None)
  Receive Date: 20090504
  Receipt Date: 20090504
  Transmission Date: 20091009
  Serious: Yes (Disabling, Other)
  Sender: FDA-Public Use
  Company Number: None

PATIENT
  Age: 5 Year
  Sex: Male
  Weight: 17.2367 kg

DRUGS (1)
  1. SINGULAIR [Suspect]
     Indication: ASTHMA
     Dosage: 1 TABLET ONCE DAILY PO
     Route: 048
     Dates: start: 20070501, end: 20090501

REACTIONS (5)
  - AGGRESSION [None]
  - ANXIETY [None]
  - MOOD SWINGS [None]
  - NIGHTMARE [None]
  - PAIN IN EXTREMITY [None]
